FAERS Safety Report 4350609-9 (Version None)
Quarter: 2004Q2

REPORT INFORMATION
  Report Type: 
  Country: None (occurrence: None)
  Receive Date: 20040429
  Receipt Date: 20040415
  Transmission Date: 20050107
  Serious: Yes (Hospitalization, Other)
  Sender: FDA-Public Use
  Company Number: 2004S1001117

PATIENT
  Age: 59 Year
  Sex: Female

DRUGS (3)
  1. CAELYX (LIPOSOMAL DOXIRUBICIN) [Suspect]
     Indication: OVARIAN CANCER
     Dosage: 46 MG, INTRAVENOUS
     Route: 042
     Dates: start: 20031103, end: 20040308
  2. PACLITAXEL [Suspect]
     Indication: OVARIAN CANCER
     Dosage: 215MG, INTRAVENOUS
     Route: 042
     Dates: start: 20031103, end: 20040308
  3. CARBOPLATIN [Suspect]
     Indication: OVARIAN CANCER
     Dosage: 540MG, INTRAVENOUS
     Route: 042
     Dates: start: 20031103, end: 20040308

REACTIONS (3)
  - ANAEMIA [None]
  - DYSPNOEA EXERTIONAL [None]
  - MALAISE [None]
